FAERS Safety Report 16987788 (Version 1)
Quarter: 2019Q4

REPORT INFORMATION
  Report Type: Spontaneous
  Country: US (occurrence: US)
  Receive Date: 20191104
  Receipt Date: 20191104
  Transmission Date: 20200122
  Serious: No
  Sender: FDA-Public Use
  Company Number: US-LUPIN PHARMACEUTICALS INC.-2019-01268

PATIENT
  Sex: Female

DRUGS (1)
  1. LISINOPRIL TABLETS USP, 5MG [Suspect]
     Active Substance: LISINOPRIL
     Indication: BLOOD PRESSURE INCREASED
     Dosage: HALF TABLET
     Route: 065

REACTIONS (4)
  - Feeling hot [Unknown]
  - Muscular weakness [Unknown]
  - Peripheral vascular disorder [Unknown]
  - Paraesthesia [Unknown]
